FAERS Safety Report 25118188 (Version 1)
Quarter: 2025Q1

REPORT INFORMATION
  Report Type: Spontaneous
  Country: US (occurrence: None)
  Receive Date: 20250324
  Receipt Date: 20250324
  Transmission Date: 20250409
  Serious: Yes (Hospitalization)
  Sender: FDA-CTU
  Company Number: None

PATIENT
  Age: 68 Year
  Sex: Female
  Weight: 80.25 kg

DRUGS (2)
  1. ZIPRASIDONE [Suspect]
     Active Substance: ZIPRASIDONE
     Dosage: 20 MG/MG DAILY ORAL
     Route: 048
     Dates: start: 20250306, end: 20250308
  2. TRAZODONE [Concomitant]
     Active Substance: TRAZODONE HYDROCHLORIDE
     Dates: start: 20240328, end: 20250308

REACTIONS (3)
  - Loss of consciousness [None]
  - Fall [None]
  - Wrist fracture [None]

NARRATIVE: CASE EVENT DATE: 20250308
